FAERS Safety Report 11280078 (Version 1)
Quarter: 2015Q3

REPORT INFORMATION
  Report Type: Spontaneous
  Country: US (occurrence: US)
  Receive Date: 20150717
  Receipt Date: 20150717
  Transmission Date: 20151125
  Serious: No
  Sender: FDA-Public Use
  Company Number: US-GALDERMA-US15001611

PATIENT
  Age: 47 Year
  Sex: Male

DRUGS (4)
  1. ORACEA (DOXYCYCLINE, USP) 40MG [Concomitant]
     Indication: ROSACEA
     Dosage: 40MG
     Route: 048
     Dates: start: 201403, end: 201411
  2. ORACEA (DOXYCYCLINE, USP) 40MG [Concomitant]
     Indication: ROSACEA
     Route: 048
     Dates: start: 20150323
  3. CLEAN AND CLEAR CLEANSER [Concomitant]
     Indication: THERAPEUTIC SKIN CARE TOPICAL
     Route: 061
  4. SOOLANTRA [Suspect]
     Active Substance: IVERMECTIN
     Indication: ROSACEA
     Dosage: 1%
     Route: 061
     Dates: start: 20150323

REACTIONS (6)
  - Rash pustular [Not Recovered/Not Resolved]
  - Skin irritation [Not Recovered/Not Resolved]
  - Dry skin [Not Recovered/Not Resolved]
  - Condition aggravated [Not Recovered/Not Resolved]
  - Erythema [Not Recovered/Not Resolved]
  - Headache [Not Recovered/Not Resolved]

NARRATIVE: CASE EVENT DATE: 20150324
